FAERS Safety Report 12654861 (Version 2)
Quarter: 2016Q3

REPORT INFORMATION
  Report Type: Spontaneous
  Country: US (occurrence: US)
  Receive Date: 20160816
  Receipt Date: 20160825
  Transmission Date: 20161109
  Serious: No
  Sender: FDA-Public Use
  Company Number: US-TAKEDA-2016TUS013948

PATIENT
  Age: 36 Year
  Sex: Male
  Weight: 97.51 kg

DRUGS (1)
  1. TRINTELLIX [Suspect]
     Active Substance: VORTIOXETINE HYDROBROMIDE
     Indication: DEPRESSION
     Dosage: 10 MG, QD
     Route: 048
     Dates: start: 20160520, end: 20160726

REACTIONS (1)
  - Intraocular pressure test abnormal [Recovered/Resolved]

NARRATIVE: CASE EVENT DATE: 20160520
